FAERS Safety Report 7773840-9 (Version None)
Quarter: 2011Q3

REPORT INFORMATION
  Report Type: 
  Country: None (occurrence: None)
  Receive Date: 20110923
  Receipt Date: 20110914
  Transmission Date: 20111222
  Serious: Yes (Other)
  Sender: FDA-Public Use
  Company Number: US-JNJFOC-20110501294

PATIENT
  Age: 35 Year
  Sex: Male

DRUGS (6)
  1. LIPITOR [Concomitant]
     Indication: DYSLIPIDAEMIA
     Route: 048
  2. DESONIDE [Concomitant]
     Indication: ECZEMA
     Route: 061
  3. CONCERTA [Suspect]
     Route: 048
     Dates: end: 20110217
  4. CONCERTA [Suspect]
     Indication: ATTENTION DEFICIT/HYPERACTIVITY DISORDER
     Route: 048
  5. CELEBREX [Concomitant]
     Indication: BACK PAIN
     Route: 048
  6. LOPROX [Concomitant]
     Indication: ECZEMA
     Route: 061

REACTIONS (3)
  - DEAFNESS UNILATERAL [None]
  - PSYCHOMOTOR HYPERACTIVITY [None]
  - TINNITUS [None]
